FAERS Safety Report 6964904-8 (Version None)
Quarter: 2010Q3

REPORT INFORMATION
  Report Type: 
  Country: None (occurrence: None)
  Receive Date: 20100903
  Receipt Date: 20100825
  Transmission Date: 20110219
  Serious: Yes (Hospitalization)
  Sender: FDA-Public Use
  Company Number: US-ELI_LILLY_AND_COMPANY-US201008008918

PATIENT
  Age: 75 Year
  Sex: Male

DRUGS (1)
  1. HUMULIN N [Suspect]
     Indication: DIABETES MELLITUS

REACTIONS (5)
  - GASTROINTESTINAL DISORDER [None]
  - INTESTINAL ANASTOMOSIS COMPLICATION [None]
  - LARGE INTESTINAL HAEMORRHAGE [None]
  - POOR QUALITY DRUG ADMINISTERED [None]
  - RECTAL HAEMORRHAGE [None]
